FAERS Safety Report 11082807 (Version 2)
Quarter: 2015Q2

REPORT INFORMATION
  Report Type: Spontaneous
  Country: US (occurrence: US)
  Receive Date: 20150501
  Receipt Date: 20150521
  Transmission Date: 20150821
  Serious: Yes (Death, Other)
  Sender: FDA-Public Use
  Company Number: US-INCYTE CORPORATION-2015IN001862

PATIENT
  Sex: Female

DRUGS (1)
  1. JAKAFI [Suspect]
     Active Substance: RUXOLITINIB
     Dosage: 10 MG, BID
     Route: 048
     Dates: start: 20140510, end: 20150417

REACTIONS (5)
  - Renal failure [Unknown]
  - Sepsis [Unknown]
  - Cardiac failure congestive [Unknown]
  - Acute myeloid leukaemia [Fatal]
  - Hypoglobulinaemia [Unknown]
